FAERS Safety Report 24573102 (Version 1)
Quarter: 2024Q4

REPORT INFORMATION
  Report Type: Spontaneous
  Country: GR (occurrence: GR)
  Receive Date: 20241101
  Receipt Date: 20241101
  Transmission Date: 20250115
  Serious: Yes (Other)
  Sender: AMGEN
  Company Number: GR-AMGEN-GRCSP2024213279

PATIENT
  Age: 23 Month
  Sex: Female

DRUGS (4)
  1. BLINATUMOMAB [Suspect]
     Active Substance: BLINATUMOMAB
     Indication: B-cell type acute leukaemia
     Dosage: 15 MILLIGRAM/SQ. METER
     Route: 040
  2. BORTEZOMIB [Suspect]
     Active Substance: BORTEZOMIB
     Indication: B-cell type acute leukaemia
     Dosage: UNK
     Route: 065
  3. FLUDARABINE [Concomitant]
     Active Substance: FLUDARABINE PHOSPHATE
  4. CYTARABINE [Concomitant]
     Active Substance: CYTARABINE

REACTIONS (5)
  - Acute lymphocytic leukaemia recurrent [Recovered/Resolved]
  - Mononuclear cell count abnormal [Unknown]
  - Cytokine release syndrome [Recovered/Resolved]
  - Bronchopulmonary aspergillosis [Unknown]
  - Neutropenia [Unknown]
